FAERS Safety Report 20417454 (Version 1)
Quarter: 2022Q1

REPORT INFORMATION
  Report Type: Spontaneous
  Country: US (occurrence: US)
  Receive Date: 20220202
  Receipt Date: 20220202
  Transmission Date: 20220423
  Serious: Yes (Other)
  Sender: FDA-Public Use
  Company Number: US-PFIZER INC-202200123816

PATIENT
  Age: 79 Year
  Sex: Male

DRUGS (9)
  1. INLYTA [Suspect]
     Active Substance: AXITINIB
     Dosage: 5 MG
  2. INLYTA [Suspect]
     Active Substance: AXITINIB
     Dosage: 5 MG
     Dates: start: 20210119
  3. INLYTA [Suspect]
     Active Substance: AXITINIB
     Dosage: 2 MG, 2X/DAY
     Dates: start: 20210427
  4. INLYTA [Suspect]
     Active Substance: AXITINIB
     Dosage: 3 MG, 2X/DAY
     Dates: start: 20210629
  5. INLYTA [Suspect]
     Active Substance: AXITINIB
     Dosage: 2 MG (EVERY 12 HOURS)
     Dates: start: 20211130
  6. INLYTA [Suspect]
     Active Substance: AXITINIB
     Dosage: 2 MG, 2X/DAY
     Dates: start: 20210406
  7. INLYTA [Suspect]
     Active Substance: AXITINIB
     Dosage: 3 MG, 2X/DAY
     Dates: start: 202106
  8. KEYTRUDA [Concomitant]
     Active Substance: PEMBROLIZUMAB
     Dosage: 200 MG IV EVERY 3 WEEKS
     Route: 042
  9. DENOSUMAB [Concomitant]
     Active Substance: DENOSUMAB
     Dosage: 120 MG SUBQ EVERY 6 WEEKS
     Route: 058

REACTIONS (6)
  - Atrial fibrillation [Unknown]
  - Asthenia [Unknown]
  - Diarrhoea [Unknown]
  - Dyspnoea [Unknown]
  - Decreased appetite [Unknown]
  - Insomnia [Unknown]

NARRATIVE: CASE EVENT DATE: 20210921
